FAERS Safety Report 24882604 (Version 1)
Quarter: 2025Q1

REPORT INFORMATION
  Report Type: Report from Study
  Country: US (occurrence: US)
  Receive Date: 20250124
  Receipt Date: 20250124
  Transmission Date: 20250409
  Serious: Yes (Other)
  Sender: BAYER HEALTHCARE PHARMACEUTICALS INC.
  Company Number: US-BAYER-2024A100873

PATIENT
  Age: 69 Year
  Sex: Female

DRUGS (5)
  1. ADEMPAS [Suspect]
     Active Substance: RIOCIGUAT
     Indication: Pulmonary arterial hypertension
  2. ADEMPAS [Suspect]
     Active Substance: RIOCIGUAT
     Indication: Pulmonary arterial hypertension
     Dosage: 2.5 MG, TID
     Route: 048
     Dates: start: 202210
  3. ADEMPAS [Suspect]
     Active Substance: RIOCIGUAT
     Indication: Pulmonary arterial hypertension
     Dosage: 2 MG, TID
  4. AMBRISENTAN [Concomitant]
     Active Substance: AMBRISENTAN
  5. SOTATERCEPT [Concomitant]
     Active Substance: SOTATERCEPT

REACTIONS (20)
  - Dyspnoea at rest [None]
  - Syncope [None]
  - Bendopnoea [None]
  - Pneumonia [Recovered/Resolved]
  - Syncope [None]
  - Dyspnoea [None]
  - Dyspnoea exertional [None]
  - Chest pain [None]
  - Fatigue [None]
  - Dizziness [None]
  - Peripheral swelling [None]
  - Joint swelling [None]
  - Weight abnormal [None]
  - Swelling [None]
  - Fatigue [None]
  - Dizziness [None]
  - Hypotension [None]
  - Dizziness [None]
  - General physical health deterioration [None]
  - Decreased activity [None]

NARRATIVE: CASE EVENT DATE: 20240801
